FAERS Safety Report 12593343 (Version 1)
Quarter: 2016Q3

REPORT INFORMATION
  Report Type: Spontaneous
  Country: US (occurrence: US)
  Receive Date: 20160726
  Receipt Date: 20160726
  Transmission Date: 20161109
  Serious: No
  Sender: FDA-Public Use
  Company Number: US-ABBVIE-15P-163-1450688-00

PATIENT
  Sex: Female

DRUGS (6)
  1. SYNTHROID [Suspect]
     Active Substance: LEVOTHYROXINE SODIUM
     Indication: AUTOIMMUNE THYROIDITIS
     Route: 065
  2. MAGNESIUM [Concomitant]
     Active Substance: MAGNESIUM
     Indication: PRODUCT USED FOR UNKNOWN INDICATION
     Route: 065
  3. VITAMIN D [Concomitant]
     Active Substance: CHOLECALCIFEROL
     Indication: VITAMIN SUPPLEMENTATION
     Route: 065
  4. SYNTHROID [Suspect]
     Active Substance: LEVOTHYROXINE SODIUM
     Indication: AUTOIMMUNE THYROIDITIS
     Route: 065
  5. DHA/EPA [Concomitant]
     Indication: PRODUCT USED FOR UNKNOWN INDICATION
     Route: 065
  6. FERRITIN [Concomitant]
     Active Substance: FERRITIN
     Indication: MINERAL SUPPLEMENTATION
     Route: 065

REACTIONS (11)
  - Thyroid hormones decreased [Unknown]
  - Muscular weakness [Unknown]
  - Muscle spasms [Unknown]
  - Infertility female [Unknown]
  - Feeling of body temperature change [Unknown]
  - Tremor [Unknown]
  - Affective disorder [Unknown]
  - Dizziness [Unknown]
  - Blood thyroid stimulating hormone decreased [Unknown]
  - Feeling abnormal [Unknown]
  - Bradycardia [Unknown]
